FAERS Safety Report 14669407 (Version 1)
Quarter: 2018Q1

REPORT INFORMATION
  Report Type: Report from Study
  Country: CH (occurrence: CH)
  Receive Date: 20180322
  Receipt Date: 20180322
  Transmission Date: 20180509
  Serious: Yes (Life-Threatening)
  Sender: FDA-Public Use
  Company Number: CH-PFIZER INC-2018066129

PATIENT
  Age: 13 Year
  Sex: Male
  Weight: 45 kg

DRUGS (3)
  1. INOTUZUMAB OZOGAMICIN [Suspect]
     Active Substance: INOTUZUMAB OZOGAMICIN
     Indication: ACUTE LYMPHOCYTIC LEUKAEMIA RECURRENT
     Dosage: UNK
     Dates: start: 20170831, end: 20171012
  2. ETOPOSIDE. [Concomitant]
     Active Substance: ETOPOSIDE
     Dosage: 60 X1
     Route: 042
     Dates: start: 20171109, end: 20171109
  3. GRAFALON [Concomitant]
     Active Substance: LAPINE T-LYMPHOCYTE IMMUNE GLOBULIN
     Dosage: 45 X3
     Route: 042
     Dates: start: 20171112, end: 20171114

REACTIONS (2)
  - Mucosal inflammation [Recovered/Resolved]
  - Radiation interaction [Recovered/Resolved]

NARRATIVE: CASE EVENT DATE: 20171113
